FAERS Safety Report 12891240 (Version 1)
Quarter: 2016Q4

REPORT INFORMATION
  Report Type: Spontaneous
  Country: US (occurrence: US)
  Receive Date: 20161026
  Receipt Date: 20161026
  Transmission Date: 20170207
  Serious: No
  Sender: FDA-Public Use
  Company Number: None

PATIENT
  Age: 67 Year
  Sex: Female
  Weight: 103.05 kg

DRUGS (14)
  1. FLUTICASONE PROPIONATE. [Concomitant]
     Active Substance: FLUTICASONE PROPIONATE
  2. PROTONIX [Concomitant]
     Active Substance: PANTOPRAZOLE SODIUM
  3. VITAMIN D [Concomitant]
     Active Substance: CHOLECALCIFEROL
  4. BUTORPHANOL TARTRATE NASAL SOLUT APOTEX CORP [Suspect]
     Active Substance: BUTORPHANOL TARTRATE
     Indication: MIGRAINE
     Dosage: ?          QUANTITY:2.5 SPRAY(S);?
     Route: 055
     Dates: start: 20161003, end: 20161025
  5. ACETAZOLAMIDE. [Concomitant]
     Active Substance: ACETAZOLAMIDE
  6. VITAMIN B-2 [Concomitant]
  7. METOPROPOLOL TARTRATE [Concomitant]
     Active Substance: METOPROLOL TARTRATE
  8. CYCLOBENZAPRINE [Concomitant]
     Active Substance: CYCLOBENZAPRINE
  9. ETODOLAC. [Concomitant]
     Active Substance: ETODOLAC
  10. OXYBUTYNIN [Concomitant]
     Active Substance: OXYBUTYNIN
  11. COQ10 [Concomitant]
     Active Substance: UBIDECARENONE
  12. ASPIRIN. [Concomitant]
     Active Substance: ASPIRIN
  13. ATORVASTATIN [Concomitant]
     Active Substance: ATORVASTATIN
  14. ZANTAC [Concomitant]
     Active Substance: RANITIDINE HYDROCHLORIDE

REACTIONS (2)
  - Product substitution issue [None]
  - Pain [None]

NARRATIVE: CASE EVENT DATE: 20161025
